FAERS Safety Report 4520176-5 (Version None)
Quarter: 2004Q4

REPORT INFORMATION
  Report Type: 
  Country: None (occurrence: None)
  Receive Date: 20041029
  Receipt Date: 20040813
  Transmission Date: 20050328
  Serious: No
  Sender: FDA-Public Use
  Company Number: 2004-119628-NL

PATIENT
  Age: 42 Year
  Sex: Female
  Weight: 54.5 kg

DRUGS (3)
  1. NUVARING [Suspect]
     Indication: CONTRACEPTION
     Dosage: DF DAILY, VAGINAL
     Route: 067
     Dates: start: 20031001
  2. NUVARING [Suspect]
     Indication: HORMONE REPLACEMENT THERAPY
     Dosage: DF DAILY, VAGINAL
     Route: 067
     Dates: start: 20031001
  3. MULTI-VITAMINS [Concomitant]

REACTIONS (4)
  - ANXIETY [None]
  - DIARRHOEA [None]
  - GENERALISED ANXIETY DISORDER [None]
  - INSOMNIA [None]
